FAERS Safety Report 8920643 (Version 1)
Quarter: 2012Q4

REPORT INFORMATION
  Report Type: 
  Country: US (occurrence: US)
  Receive Date: 20121122
  Receipt Date: 20121122
  Transmission Date: 20130627
  Serious: No
  Sender: FDA-Public Use
  Company Number: US-009507513-1201USA01684

PATIENT
  Sex: Female

DRUGS (3)
  1. ZETIA [Suspect]
     Dosage: 10 mg, qd
     Route: 048
     Dates: start: 201110
  2. DIOVAN [Concomitant]
  3. ASPIRIN [Concomitant]

REACTIONS (5)
  - Musculoskeletal pain [Unknown]
  - Pain in extremity [Unknown]
  - Arthralgia [Unknown]
  - Constipation [Unknown]
  - Abdominal pain upper [Unknown]
